FAERS Safety Report 5659386-2 (Version None)
Quarter: 2008Q1

REPORT INFORMATION
  Report Type: 
  Country: None (occurrence: None)
  Receive Date: 20080311
  Receipt Date: 20080228
  Transmission Date: 20080703
  Serious: Yes (Life-Threatening, Hospitalization, Other)
  Sender: FDA-Public Use
  Company Number: DE-RANBAXY-2008US-13321

PATIENT

DRUGS (50)
  1. ISOPTIN SR [Suspect]
     Indication: ATRIAL FIBRILLATION
     Dosage: 80 MG, BID
     Route: 048
     Dates: start: 20050709
  2. ACETYLCYSTEINE [Suspect]
     Indication: MUCOUS MEMBRANE DISORDER
     Dosage: 300 MG, BID
     Route: 048
     Dates: start: 20050629, end: 20050712
  3. DELIX [Suspect]
     Indication: CORONARY ARTERY DISEASE
     Dosage: 1 IN 1 D
     Route: 048
     Dates: start: 20050630, end: 20050702
  4. AVELOX [Suspect]
     Indication: CHRONIC OBSTRUCTIVE PULMONARY DISEASE
     Dosage: 400 MG, QD
     Route: 048
     Dates: start: 20050627, end: 20050703
  5. AVELOX [Suspect]
     Indication: INFECTION
  6. DISTRANEURIN [Suspect]
     Indication: ALCOHOL WITHDRAWAL SYNDROME
     Dosage: 2 DOSAGE FORMS, 3 IN 1 D
     Route: 048
     Dates: start: 20050630, end: 20050703
  7. HALOPERIDOL [Suspect]
     Indication: SEDATION
     Dosage: 10 GTT, QD
     Route: 048
     Dates: start: 20050629, end: 20050630
  8. HALOPERIDOL [Suspect]
     Dosage: 10 GTT, QD
     Route: 048
     Dates: start: 20050703, end: 20050703
  9. RINGER'S [Suspect]
     Indication: FLUID REPLACEMENT
     Dosage: 1000 ML, QD
     Route: 042
     Dates: start: 20050627, end: 20050703
  10. PARACEFAN [Suspect]
     Indication: ALCOHOL WITHDRAWAL SYNDROME
     Dosage: 1.5 MG, QD
     Route: 042
     Dates: start: 20050628, end: 20050630
  11. PARACEFAN [Suspect]
     Dosage: 1.5 MG, QD
     Route: 042
     Dates: start: 20050703, end: 20050704
  12. TRANXILIUM [Suspect]
     Indication: SEDATION
     Dosage: 5 MG, TID + 10MG AT NIGHT
     Route: 048
     Dates: start: 20050627, end: 20050702
  13. TRANXILIUM [Suspect]
     Dosage: 5 MG, TID + 10 MG AT NIGHT
     Route: 048
     Dates: start: 20050705, end: 20050705
  14. HEPARIN [Suspect]
     Indication: PROPHYLAXIS
     Dosage: 25000 IU, UNK
     Route: 058
     Dates: start: 20050627, end: 20050709
  15. BRICANYL [Suspect]
     Indication: DYSPNOEA
     Dosage: 1 AMPOULE, UNK
     Route: 058
     Dates: start: 20050627, end: 20050709
  16. JUNIK [Suspect]
     Indication: CHRONIC OBSTRUCTIVE PULMONARY DISEASE
     Dosage: 2 IN 1 D
     Route: 050
     Dates: start: 20050627, end: 20050715
  17. FORADIL [Suspect]
     Indication: CHRONIC OBSTRUCTIVE PULMONARY DISEASE
     Dosage: 2 IN 1 D
     Route: 050
     Dates: start: 20050629, end: 20050718
  18. PANTOZOL [Suspect]
     Indication: PROPHYLAXIS
     Dosage: 40 MG, QD
     Route: 048
     Dates: start: 20050703, end: 20050718
  19. PANTOZOL [Suspect]
     Dosage: UNK
     Route: 048
     Dates: start: 20050629, end: 20050630
  20. THEOPHYLLINE [Suspect]
     Indication: CHRONIC OBSTRUCTIVE PULMONARY DISEASE
     Dosage: 600 MG, QD
     Route: 048
     Dates: start: 20050703, end: 20050709
  21. THEOPHYLLINE [Suspect]
     Dosage: 600 MG, UNK
  22. THEOPHYLLINE [Suspect]
     Dosage: 200 MG - 600 MG
     Route: 042
     Dates: start: 20050627, end: 20050630
  23. THEOPHYLLINE [Suspect]
     Dosage: 200 MG, UNK
     Route: 042
     Dates: start: 20050718, end: 20050718
  24. THEOPHYLLINE [Suspect]
     Dosage: 200 MG, UNK
     Route: 042
     Dates: start: 20050721, end: 20050721
  25. BEROTEC [Suspect]
     Indication: CHRONIC OBSTRUCTIVE PULMONARY DISEASE
     Dosage: 2-3 TIMES, WEEKLY
     Route: 050
     Dates: start: 20040601
  26. SPIRIVA [Suspect]
     Indication: CHRONIC OBSTRUCTIVE PULMONARY DISEASE
     Dosage: 1 IN 1 D
     Route: 050
     Dates: start: 20040601
  27. PREDNISOLONE [Suspect]
     Indication: CHRONIC OBSTRUCTIVE PULMONARY DISEASE
     Dosage: 20 MG, QD
     Route: 048
     Dates: start: 20050719
  28. PREDNISOLONE [Suspect]
     Dosage: 50 MG, QD
     Route: 048
     Dates: start: 20050628, end: 20050705
  29. PREDNISOLONE [Suspect]
     Dosage: 80 MG, QD
     Route: 048
     Dates: start: 20050707, end: 20050715
  30. PREDNISOLONE [Suspect]
     Dosage: 5 MG, UNK
     Route: 048
  31. AMBROXOL [Suspect]
     Indication: MUCOUS MEMBRANE DISORDER
     Dosage: 14 GTT, BID
     Route: 048
     Dates: start: 20050701, end: 20050718
  32. NITROGLYCERIN [Suspect]
     Indication: HYPERTENSION
     Dosage: 50 MG, UNK
     Route: 042
     Dates: start: 20050702, end: 20050702
  33. ALT-INSULIN [Suspect]
     Indication: BLOOD GLUCOSE
     Dosage: UNK
     Route: 058
     Dates: start: 20050703, end: 20050703
  34. DELIX PLUS [Suspect]
     Indication: CARDIAC DISORDER
     Dosage: UNK
     Route: 048
  35. NORVASC [Suspect]
     Indication: CARDIAC DISORDER
     Dosage: 5 MG, QD
     Route: 048
     Dates: start: 20050704, end: 20050709
  36. KALINOR-BRAUSETABLETTEN [Suspect]
     Indication: HYPOKALAEMIA
     Dosage: 1 IN 1 D
     Route: 048
     Dates: start: 20050704, end: 20050714
  37. FUROSEMIDE [Suspect]
     Indication: HYPERTENSION
     Dosage: 40 MG, QD
     Route: 048
     Dates: start: 20050707
  38. OXAZEPAM [Suspect]
     Indication: SEDATION
     Dosage: UNK
     Route: 048
     Dates: start: 20050708, end: 20050708
  39. DIGIMERCK [Suspect]
     Indication: CARDIAC DISORDER
     Dosage: 0.1 MG, QD
     Route: 048
     Dates: start: 20050708
  40. MARCUMAR [Suspect]
     Indication: ATRIAL FIBRILLATION
     Dosage: UNK
     Route: 048
     Dates: start: 20050710
  41. CA-MINERALIEN [Suspect]
     Indication: OSTEOPOROSIS
     Dosage: 500 MG, BID
     Route: 048
     Dates: start: 20050715, end: 20050718
  42. DECORTIN H [Suspect]
     Indication: CHRONIC OBSTRUCTIVE PULMONARY DISEASE
     Dosage: 15 MG, QD
     Route: 048
     Dates: start: 20050716, end: 20050718
  43. DECORTIN H [Suspect]
     Dosage: 100 MG, QD
     Route: 048
     Dates: start: 20050721, end: 20050721
  44. VIGANTOLETTEN [Suspect]
     Indication: OSTEOPOROSIS
     Dosage: 1000 IU, QD
     Route: 048
     Dates: start: 20050718, end: 20050718
  45. ATMADISC [Suspect]
     Indication: CHRONIC OBSTRUCTIVE PULMONARY DISEASE
     Dosage: UNK
     Route: 050
  46. VERAGAMMA [Suspect]
     Indication: TACHYARRHYTHMIA
     Dosage: 80 MG-240MG, DAILY
     Route: 048
     Dates: start: 20050718
  47. VERAGAMMA [Suspect]
     Dosage: 80 MG, TID
     Route: 048
  48. GASTRACID [Suspect]
     Indication: PROPHYLAXIS
     Dosage: 20 MG, ONCE IN EVENING
     Route: 048
     Dates: start: 20050719
  49. OSTEOPLUS BT [Suspect]
     Indication: OSTEOPOROSIS
     Dosage: 2 IN 1 D
     Route: 048
     Dates: start: 20050719
  50. SALUTEC [Suspect]
     Indication: CARDIAC DISORDER
     Dosage: 5/25 DAILY
     Route: 048
     Dates: start: 20050703

REACTIONS (6)
  - NIKOLSKY'S SIGN [None]
  - PRURITUS [None]
  - PYREXIA [None]
  - SKIN LESION [None]
  - STEVENS-JOHNSON SYNDROME [None]
  - TOXIC EPIDERMAL NECROLYSIS [None]
